FAERS Safety Report 7011003-5 (Version None)
Quarter: 2010Q3

REPORT INFORMATION
  Report Type: 
  Country: None (occurrence: None)
  Receive Date: 20100922
  Receipt Date: 20100922
  Transmission Date: 20110219
  Serious: Yes (Other)
  Sender: FDA-Public Use
  Company Number: None

PATIENT
  Age: 54 Year
  Sex: Female
  Weight: 58.9676 kg

DRUGS (2)
  1. AVELOX [Suspect]
     Indication: BRONCHITIS
     Dosage: 2/DAILY PO
     Route: 048
     Dates: start: 20100121, end: 20100128
  2. PREDNISONE [Suspect]
     Indication: BRONCHITIS
     Dosage: 1/DAILY PO
     Route: 048
     Dates: start: 20100121, end: 20100123

REACTIONS (6)
  - ARTHROPATHY [None]
  - LIGAMENT DISORDER [None]
  - LIGAMENT PAIN [None]
  - MUSCULOSKELETAL CHEST PAIN [None]
  - MUSCULOSKELETAL PAIN [None]
  - PAROTID GLAND ENLARGEMENT [None]
